FAERS Safety Report 25823660 (Version 1)
Quarter: 2025Q3

REPORT INFORMATION
  Report Type: Spontaneous
  Country: CN (occurrence: CN)
  Receive Date: 20250919
  Receipt Date: 20250919
  Transmission Date: 20251021
  Serious: Yes (Other)
  Sender: MYLAN
  Company Number: CN-MYLANLABS-2025M1079387

PATIENT
  Age: 76 Year
  Sex: Male
  Weight: 65.9 kg

DRUGS (8)
  1. CARDURA XL [Suspect]
     Active Substance: DOXAZOSIN MESYLATE
     Indication: Hypertension
     Dosage: 4 MILLIGRAM, QD
     Dates: start: 20250907, end: 20250911
  2. CARDURA XL [Suspect]
     Active Substance: DOXAZOSIN MESYLATE
     Indication: Benign prostatic hyperplasia
     Dosage: 4 MILLIGRAM, QD
     Dates: start: 20250907, end: 20250911
  3. CARDURA XL [Suspect]
     Active Substance: DOXAZOSIN MESYLATE
     Dosage: 4 MILLIGRAM, QD
     Route: 048
     Dates: start: 20250907, end: 20250911
  4. CARDURA XL [Suspect]
     Active Substance: DOXAZOSIN MESYLATE
     Dosage: 4 MILLIGRAM, QD
     Route: 048
     Dates: start: 20250907, end: 20250911
  5. CARDURA XL [Suspect]
     Active Substance: DOXAZOSIN MESYLATE
  6. CARDURA XL [Suspect]
     Active Substance: DOXAZOSIN MESYLATE
  7. CARDURA XL [Suspect]
     Active Substance: DOXAZOSIN MESYLATE
     Route: 048
  8. CARDURA XL [Suspect]
     Active Substance: DOXAZOSIN MESYLATE
     Route: 048

REACTIONS (1)
  - Syncope [Recovered/Resolved]

NARRATIVE: CASE EVENT DATE: 20250908
